FAERS Safety Report 12520594 (Version 1)
Quarter: 2016Q2

REPORT INFORMATION
  Report Type: Spontaneous
  Country: US (occurrence: None)
  Receive Date: 20160630
  Receipt Date: 20160630
  Transmission Date: 20160815
  Serious: No
  Sender: FDA-Public Use
  Company Number: None

PATIENT
  Age: 51 Year
  Sex: Female

DRUGS (1)
  1. IBRANCE [Suspect]
     Active Substance: PALBOCICLIB
     Indication: NEOPLASM MALIGNANT
     Dosage: 125MG QD X 21 DAYS
     Route: 048
     Dates: start: 20160208

REACTIONS (2)
  - Therapy cessation [None]
  - Gastroenteritis viral [None]

NARRATIVE: CASE EVENT DATE: 201606
